FAERS Safety Report 4305990-3 (Version None)
Quarter: 2004Q1

REPORT INFORMATION
  Report Type: 
  Country: None (occurrence: None)
  Receive Date: 20040225
  Receipt Date: 20040216
  Transmission Date: 20041129
  Serious: Yes (Other)
  Sender: FDA-Public Use
  Company Number: 200410089BFR

PATIENT
  Age: 74 Year
  Sex: Male
  Weight: 76 kg

DRUGS (2)
  1. MOXIFLOXACIN HCL [Suspect]
     Dosage: 800 MG, TOTAL DAILY, ORAL
     Route: 048
  2. RYTHMOL [Concomitant]

REACTIONS (4)
  - ASTHENIA [None]
  - BALANCE DISORDER [None]
  - HYPOCHONDRIASIS [None]
  - MUSCULAR WEAKNESS [None]
